FAERS Safety Report 19727551 (Version 1)
Quarter: 2021Q3

REPORT INFORMATION
  Report Type: Spontaneous
  Country: DE (occurrence: DE)
  Receive Date: 20210820
  Receipt Date: 20210820
  Transmission Date: 20211014
  Serious: Yes (Other)
  Sender: FDA-Public Use
  Company Number: DE-GLAXOSMITHKLINE-DE2021174697

PATIENT
  Age: 75 Year
  Sex: Male

DRUGS (4)
  1. ELEBRATO ELLIPTA [Suspect]
     Active Substance: FLUTICASONE FUROATE\UMECLIDINIUM BROMIDE\VILANTEROL TRIFENATATE
     Indication: EMPHYSEMA
  2. BISOPROLOL [Concomitant]
     Active Substance: BISOPROLOL
     Indication: PRODUCT USED FOR UNKNOWN INDICATION
     Dosage: 5 MG, QD
     Route: 065
  3. ELEBRATO ELLIPTA [Suspect]
     Active Substance: FLUTICASONE FUROATE\UMECLIDINIUM BROMIDE\VILANTEROL TRIFENATATE
     Indication: CHRONIC OBSTRUCTIVE PULMONARY DISEASE
     Dosage: 1 DF, QD (1 STROKE PER DAY)
     Route: 065
     Dates: start: 2021, end: 20210716
  4. MARCUMAR [Concomitant]
     Active Substance: PHENPROCOUMON
     Indication: PRODUCT USED FOR UNKNOWN INDICATION
     Dosage: UNK UNK, QD (1 X DAILY ACCORDING TO QUICKWERT)
     Route: 065

REACTIONS (11)
  - Ocular hypertension [Recovered/Resolved]
  - Headache [Recovered/Resolved]
  - Confusional state [Recovered/Resolved]
  - Dry mouth [Recovered/Resolved]
  - Arthralgia [Recovered/Resolved]
  - Nocturia [Recovered/Resolved]
  - Abnormal dreams [Recovered/Resolved]
  - Middle insomnia [Recovered/Resolved]
  - Tachycardia [Recovered/Resolved]
  - Balance disorder [Recovered/Resolved]
  - Neck pain [Recovered/Resolved]
